FAERS Safety Report 9111145 (Version 1)
Quarter: 2013Q1

REPORT INFORMATION
  Report Type: Spontaneous
  Country: US (occurrence: US)
  Receive Date: 20130219
  Receipt Date: 20130219
  Transmission Date: 20140127
  Serious: No
  Sender: FDA-Public Use
  Company Number: US-BRISTOL-MYERS SQUIBB COMPANY-16978959

PATIENT
  Age: 40 Year
  Sex: Female

DRUGS (5)
  1. ABATACEPT SUBQ INJECTION 125MG/ML [Suspect]
     Indication: RHEUMATOID ARTHRITIS
     Route: 058
  2. ARAVA [Concomitant]
  3. AZOR [Concomitant]
  4. NEXIUM [Concomitant]
  5. VERAMYST [Concomitant]

REACTIONS (2)
  - Nasopharyngitis [Not Recovered/Not Resolved]
  - Incorrect product storage [Unknown]
